FAERS Safety Report 13725786 (Version 1)
Quarter: 2017Q3

REPORT INFORMATION
  Report Type: Spontaneous
  Country: US (occurrence: US)
  Receive Date: 20170706
  Receipt Date: 20170706
  Transmission Date: 20171127
  Serious: Yes (Other)
  Sender: FDA-Public Use
  Company Number: None

PATIENT
  Age: 54 Year
  Sex: Female
  Weight: 48.6 kg

DRUGS (3)
  1. MONTELUKAST [Concomitant]
     Active Substance: MONTELUKAST SODIUM
  2. CEFUROXIME AXETIL. [Suspect]
     Active Substance: CEFUROXIME AXETIL
     Indication: SINUSITIS
     Dosage: ?          OTHER STRENGTH:MG;QUANTITY:20 TABLET(S);?
     Route: 048
     Dates: start: 20170705, end: 20170705
  3. CHEWABLE CALCIUM SUPPLEMENT [Concomitant]

REACTIONS (5)
  - Musculoskeletal disorder [None]
  - Hyperhidrosis [None]
  - Chills [None]
  - Vomiting [None]
  - Drug prescribing error [None]

NARRATIVE: CASE EVENT DATE: 20170705
